FAERS Safety Report 7094057-X (Version None)
Quarter: 2010Q4

REPORT INFORMATION
  Report Type: 
  Country: None (occurrence: None)
  Receive Date: 20101110
  Receipt Date: 20101028
  Transmission Date: 20110411
  Serious: Yes (Other)
  Sender: FDA-Public Use
  Company Number: FR-ELI_LILLY_AND_COMPANY-FR201010006751

PATIENT
  Age: 66 Year
  Sex: Female

DRUGS (4)
  1. CYMBALTA [Suspect]
     Dosage: 60 MG, DAILY (1/D)
     Route: 048
     Dates: start: 20101026
  2. PROZAC [Suspect]
     Dosage: 20 MG, DAILY (1/D)
     Route: 048
     Dates: end: 20101025
  3. ACUPAN [Concomitant]
     Indication: BACK PAIN
     Route: 048
  4. OXYCONTIN [Concomitant]
     Indication: BACK PAIN
     Route: 048

REACTIONS (1)
  - CONFUSIONAL STATE [None]
